FAERS Safety Report 8179563-9 (Version None)
Quarter: 2012Q1

REPORT INFORMATION
  Report Type: 
  Country: None (occurrence: None)
  Receive Date: 20120229
  Receipt Date: 20120229
  Transmission Date: 20120608
  Serious: Yes (Life-Threatening, Hospitalization, Disabling)
  Sender: FDA-Public Use
  Company Number: None

PATIENT
  Age: 41 Year
  Sex: Female

DRUGS (3)
  1. DEXLANSOPRAZOLE [Suspect]
     Indication: OESOPHAGITIS
     Dosage: KAPIDEX 60MG DAILY MOUTH
     Route: 048
     Dates: start: 20111101, end: 20120101
  2. DEXLANSOPRAZOLE [Suspect]
     Indication: NAUSEA
     Dosage: KAPIDEX 60MG DAILY MOUTH
     Route: 048
     Dates: start: 20111101, end: 20120101
  3. DEXLANSOPRAZOLE [Suspect]
     Indication: GASTRITIS
     Dosage: KAPIDEX 60MG DAILY MOUTH
     Route: 048
     Dates: start: 20111101, end: 20120101

REACTIONS (2)
  - THROMBOSIS [None]
  - MYOCARDIAL INFARCTION [None]
